FAERS Safety Report 21783989 (Version 1)
Quarter: 2022Q4

REPORT INFORMATION
  Report Type: Spontaneous
  Country: NL (occurrence: NL)
  Receive Date: 20221227
  Receipt Date: 20221227
  Transmission Date: 20230113
  Serious: Yes (Hospitalization, Other)
  Sender: FDA-Public Use
  Company Number: NL-GLENMARK PHARMACEUTICALS-2022GMK077335

PATIENT
  Age: 72 Year
  Sex: Male

DRUGS (1)
  1. ROPINIROLE HYDROCHLORIDE [Suspect]
     Active Substance: ROPINIROLE HYDROCHLORIDE
     Indication: Restless legs syndrome
     Dosage: 12 MILLIGRAM, QD
     Route: 065

REACTIONS (6)
  - Suicidal ideation [Unknown]
  - Quality of life decreased [Unknown]
  - Insomnia [Unknown]
  - Intentional product use issue [Unknown]
  - Depressive symptom [Unknown]
  - Oedema peripheral [Unknown]
